FAERS Safety Report 11632239 (Version 1)
Quarter: 2015Q4

REPORT INFORMATION
  Report Type: Spontaneous
  Country: US (occurrence: None)
  Receive Date: 20151014
  Receipt Date: 20151014
  Transmission Date: 20160304
  Serious: No
  Sender: FDA-Public Use
  Company Number: None

PATIENT
  Age: 67 Year
  Sex: Female

DRUGS (1)
  1. FORTEO [Suspect]
     Active Substance: TERIPARATIDE
     Indication: PRODUCT USED FOR UNKNOWN INDICATION
     Dosage: 20 MCG?QD?SQ
     Dates: start: 20150301, end: 20150901

REACTIONS (2)
  - Blood calcium increased [None]
  - Arthralgia [None]

NARRATIVE: CASE EVENT DATE: 20150915
